FAERS Safety Report 9442009 (Version 1)
Quarter: 2013Q3

REPORT INFORMATION
  Report Type: Spontaneous
  Country: US (occurrence: US)
  Receive Date: 20130806
  Receipt Date: 20130806
  Transmission Date: 20140515
  Serious: Yes (Hospitalization, Other)
  Sender: FDA-Public Use
  Company Number: US-ELI_LILLY_AND_COMPANY-US201307009455

PATIENT
  Age: 73 Year
  Sex: Female
  Weight: 95.24 kg

DRUGS (12)
  1. HUMALOG 25% LISPRO, 75% NPL [Suspect]
     Indication: TYPE 2 DIABETES MELLITUS
     Dosage: 45 U, EACH MORNING
     Dates: start: 2000
  2. HUMALOG 25% LISPRO, 75% NPL [Suspect]
     Dosage: 35 U, EACH EVENING
     Dates: start: 2000
  3. HUMALOG 25% LISPRO, 75% NPL [Suspect]
     Dosage: 30 U, EACH MORNING
  4. HUMALOG 25% LISPRO, 75% NPL [Suspect]
     Dosage: 25 U, EACH EVENING
  5. HUMALOG 25% LISPRO, 75% NPL [Suspect]
     Indication: TYPE 2 DIABETES MELLITUS
  6. LIPITOR [Suspect]
  7. CARVEDILOL [Concomitant]
  8. CLARITIN [Concomitant]
  9. BENICAR [Concomitant]
  10. BABY ASPIRIN [Concomitant]
     Dosage: 2 DF, UNK
  11. PRO-AIR [Concomitant]
  12. LASIX [Concomitant]
     Dosage: UNK, PRN

REACTIONS (4)
  - Cardiac failure congestive [Not Recovered/Not Resolved]
  - Weight increased [Not Recovered/Not Resolved]
  - Cough [Recovered/Resolved]
  - Blood glucose increased [Recovered/Resolved]
